FAERS Safety Report 21576929 (Version 2)
Quarter: 2022Q4

REPORT INFORMATION
  Report Type: Report from Study
  Country: US (occurrence: US)
  Receive Date: 20221110
  Receipt Date: 20221122
  Transmission Date: 20230112
  Serious: Yes (Hospitalization)
  Sender: FDA-Public Use
  Company Number: US-TAKEDA-2021TUS068184

PATIENT
  Sex: Male
  Weight: 98 kg

DRUGS (23)
  1. HUMAN IMMUNOGLOBULIN G [Suspect]
     Active Substance: HUMAN IMMUNOGLOBULIN G
     Indication: Immunodeficiency common variable
     Dosage: 10 GRAM, 1/WEEK
     Route: 058
     Dates: start: 20211005
  2. HUMAN IMMUNOGLOBULIN G [Suspect]
     Active Substance: HUMAN IMMUNOGLOBULIN G
     Indication: Selective IgG subclass deficiency
  3. HUMAN IMMUNOGLOBULIN G [Suspect]
     Active Substance: HUMAN IMMUNOGLOBULIN G
     Indication: Asthma
  4. ACETAMINOPHEN [Concomitant]
     Active Substance: ACETAMINOPHEN
  5. DIPHENHYDRAMINE [Concomitant]
     Active Substance: DIPHENHYDRAMINE
  6. LIDOCAINE [Concomitant]
     Active Substance: LIDOCAINE
  7. EPINEPHRINE [Concomitant]
     Active Substance: EPINEPHRINE
  8. PULMICORT TURBUHALER [Concomitant]
     Active Substance: BUDESONIDE
  9. SPIRIVA RESPIMAT [Concomitant]
     Active Substance: TIOTROPIUM BROMIDE
  10. VITAMIN B12 [Concomitant]
     Active Substance: CYANOCOBALAMIN
  11. METHYLPREDNISOLONE [Concomitant]
     Active Substance: METHYLPREDNISOLONE
  12. DEXILANT [Concomitant]
     Active Substance: DEXLANSOPRAZOLE
  13. VITAMIN D3 [Concomitant]
     Active Substance: CHOLECALCIFEROL
  14. NORTRIPTYLINE [Concomitant]
     Active Substance: NORTRIPTYLINE
  15. CODEINE\PROMETHAZINE [Concomitant]
     Active Substance: CODEINE\PROMETHAZINE
  16. FLUTICASONE PROPIONATE [Concomitant]
     Active Substance: FLUTICASONE PROPIONATE
  17. BENZONATATE [Concomitant]
     Active Substance: BENZONATATE
  18. PROMETHAZINE HYDROCHLORIDE [Concomitant]
     Active Substance: PROMETHAZINE HYDROCHLORIDE
  19. POTASSIUM [Concomitant]
     Active Substance: POTASSIUM
  20. SPIRONOLACTONE [Concomitant]
     Active Substance: SPIRONOLACTONE
  21. TEMAZEPAM [Concomitant]
     Active Substance: TEMAZEPAM
  22. TEKTURNA [Concomitant]
     Active Substance: ALISKIREN HEMIFUMARATE
  23. VITAMIN B [Concomitant]
     Active Substance: VITAMIN B

REACTIONS (14)
  - Asthma [Unknown]
  - Illness [Unknown]
  - Infusion related reaction [Unknown]
  - Post-traumatic stress disorder [Unknown]
  - Fall [Unknown]
  - Rib fracture [Unknown]
  - Gastroenteritis viral [Unknown]
  - Tendon rupture [Unknown]
  - Drug ineffective [Unknown]
  - Dysarthria [Unknown]
  - Malaise [Unknown]
  - Dizziness [Unknown]
  - Dyspnoea [Unknown]
  - Product availability issue [Unknown]
